FAERS Safety Report 11846841 (Version 1)
Quarter: 2015Q4

REPORT INFORMATION
  Report Type: Spontaneous
  Country: JP (occurrence: JP)
  Receive Date: 20151217
  Receipt Date: 20151217
  Transmission Date: 20160305
  Serious: Yes (Hospitalization)
  Sender: FDA-Public Use
  Company Number: JP-GLAXOSMITHKLINE-JP2015JPN176447

PATIENT
  Age: 82 Year

DRUGS (1)
  1. LAMICTAL [Suspect]
     Active Substance: LAMOTRIGINE
     Dosage: UNK
     Route: 048
     Dates: start: 20151029

REACTIONS (3)
  - Pyrexia [Unknown]
  - Hepatic function abnormal [Unknown]
  - Rash [Unknown]

NARRATIVE: CASE EVENT DATE: 20151107
